FAERS Safety Report 9640317 (Version 3)
Quarter: 2014Q1

REPORT INFORMATION
  Report Type: Spontaneous
  Country: US (occurrence: US)
  Receive Date: 20131023
  Receipt Date: 20140218
  Transmission Date: 20141002
  Serious: Yes (Other)
  Sender: FDA-Public Use
  Company Number: US-UCBSA-101010

PATIENT
  Age: 55 Year
  Sex: Female
  Weight: 68 kg

DRUGS (1)
  1. KEPPRA XR [Suspect]
     Indication: CONVULSION

REACTIONS (3)
  - Hepatic cirrhosis [Not Recovered/Not Resolved]
  - Loss of consciousness [Unknown]
  - Inappropriate schedule of drug administration [Not Recovered/Not Resolved]
